FAERS Safety Report 25289099 (Version 2)
Quarter: 2025Q4

REPORT INFORMATION
  Report Type: Spontaneous
  Country: JP (occurrence: JP)
  Receive Date: 20250509
  Receipt Date: 20251124
  Transmission Date: 20260118
  Serious: Yes (Other)
  Sender: UCB
  Company Number: JP-UCBJ-CD202505969UCBPHAPROD

PATIENT
  Age: 4 Decade

DRUGS (7)
  1. FINTEPLA [Suspect]
     Active Substance: FENFLURAMINE
     Indication: Severe myoclonic epilepsy of infancy
     Dosage: 0.048 MILLIGRAM/KILOGRAM, 2X/DAY (BID)
  2. FINTEPLA [Suspect]
     Active Substance: FENFLURAMINE
     Dosage: 0.96 MILLIGRAM/KILOGRAM, 2X/DAY (BID)
  3. FINTEPLA [Suspect]
     Active Substance: FENFLURAMINE
     Dosage: 0.19 MILLIGRAM/KILOGRAM, DAILY
  4. FINTEPLA [Suspect]
     Active Substance: FENFLURAMINE
     Dosage: 0.23 MILLIGRAM/KILOGRAM, DAILY
  5. POTASSIUM BROMIDE [Concomitant]
     Active Substance: POTASSIUM BROMIDE
     Indication: Product used for unknown indication
     Dosage: UNK
  6. VALPROATE SODIUM [Concomitant]
     Active Substance: VALPROATE SODIUM
     Indication: Product used for unknown indication
     Dosage: UNK
  7. SULPIRIDE [Concomitant]
     Active Substance: SULPIRIDE
     Indication: Product used for unknown indication
     Dosage: UNK

REACTIONS (2)
  - Epilepsy [Unknown]
  - Decreased appetite [Recovered/Resolved]
